FAERS Safety Report 4614146-6 (Version None)
Quarter: 2005Q1

REPORT INFORMATION
  Report Type: 
  Country: None (occurrence: None)
  Receive Date: 20050315
  Receipt Date: 20050302
  Transmission Date: 20050727
  Serious: Yes (Other)
  Sender: FDA-Public Use
  Company Number: 2005039963

PATIENT
  Sex: Female
  Weight: 72.5755 kg

DRUGS (5)
  1. ROGAINE [Suspect]
     Indication: ALOPECIA
     Dosage: TWICE DAILY, TOPICAL
     Route: 061
     Dates: start: 20000101
  2. GLIMEPIRIDE [Concomitant]
  3. EZETIMIBE (EZETIMIBE) [Concomitant]
  4. HYZAAR [Concomitant]
  5. PRAVASTATIN SODIUM [Concomitant]

REACTIONS (3)
  - CEREBROVASCULAR ACCIDENT [None]
  - DRUG INEFFECTIVE [None]
  - EYE DISORDER [None]
